FAERS Safety Report 23608099 (Version 1)
Quarter: 2024Q1

REPORT INFORMATION
  Report Type: Spontaneous
  Country: GB (occurrence: GB)
  Receive Date: 20240307
  Receipt Date: 20240307
  Transmission Date: 20240410
  Serious: Yes (Other)
  Sender: FDA-Public Use
  Company Number: GB-B.Braun Medical Inc.-2154164

PATIENT
  Age: 11 Year
  Sex: Female
  Weight: 48 kg

DRUGS (2)
  1. METRONIDAZOLE [Suspect]
     Active Substance: METRONIDAZOLE
     Dates: start: 20240214
  2. CIPROFLOXACIN [Concomitant]
     Active Substance: CIPROFLOXACIN

REACTIONS (3)
  - Thermal burn [Recovering/Resolving]
  - Product administered to patient of inappropriate age [Recovering/Resolving]
  - Off label use [Recovering/Resolving]
